FAERS Safety Report 25689481 (Version 1)
Quarter: 2025Q3

REPORT INFORMATION
  Report Type: Spontaneous
  Country: US (occurrence: US)
  Receive Date: 20250818
  Receipt Date: 20250818
  Transmission Date: 20251021
  Serious: Yes (Other)
  Sender: ORGANON
  Company Number: US-ORGANON-O2508USA001060

PATIENT
  Age: 37 Year
  Sex: Female

DRUGS (1)
  1. NEXPLANON [Suspect]
     Active Substance: ETONOGESTREL
     Route: 059
     Dates: start: 20240218

REACTIONS (9)
  - Suicidal ideation [Unknown]
  - Heavy menstrual bleeding [Unknown]
  - Hyperhidrosis [Not Recovered/Not Resolved]
  - Illness [Unknown]
  - Aggression [Unknown]
  - Hormone level abnormal [Unknown]
  - Depression [Unknown]
  - Influenza like illness [Unknown]
  - Dissociation [Unknown]

NARRATIVE: CASE EVENT DATE: 20240218
